FAERS Safety Report 10540254 (Version 1)
Quarter: 2014Q4

REPORT INFORMATION
  Report Type: Spontaneous
  Country: US (occurrence: None)
  Receive Date: 20141023
  Receipt Date: 20141023
  Transmission Date: 20150529
  Serious: Yes (Other)
  Sender: FDA-Public Use
  Company Number: None

PATIENT
  Age: 42 Year
  Sex: Female

DRUGS (1)
  1. LUPRON DEPOT [Suspect]
     Active Substance: LEUPROLIDE ACETATE
     Indication: ENDOMETRIOSIS
     Dosage: 3.75, INJECTABLE, MONTHLY, INTRAMUSCULAR 030
     Route: 030
     Dates: start: 20140915

REACTIONS (3)
  - Rash [None]
  - Rash pruritic [None]
  - Abdominal distension [None]

NARRATIVE: CASE EVENT DATE: 20141018
